FAERS Safety Report 18450936 (Version 1)
Quarter: 2020Q4

REPORT INFORMATION
  Report Type: Spontaneous
  Country: US (occurrence: US)
  Receive Date: 20201030
  Receipt Date: 20201030
  Transmission Date: 20210114
  Serious: Yes (Other)
  Sender: FDA-Public Use
  Company Number: US-VERTEX PHARMACEUTICALS-2020-021446

PATIENT

DRUGS (1)
  1. TRIKAFTA [Suspect]
     Active Substance: ELEXACAFTOR\IVACAFTOR\TEZACAFTOR
     Indication: CYSTIC FIBROSIS
     Dosage: UNK
     Route: 048

REACTIONS (7)
  - Fatigue [Unknown]
  - Change of bowel habit [Unknown]
  - Seizure [Unknown]
  - Transaminases abnormal [Unknown]
  - Immunosuppressant drug level increased [Unknown]
  - Transaminases increased [Unknown]
  - Toxicity to various agents [Unknown]
